FAERS Safety Report 8254921-2 (Version None)
Quarter: 2012Q2

REPORT INFORMATION
  Report Type: 
  Country: None (occurrence: None)
  Receive Date: 20120403
  Receipt Date: 20120329
  Transmission Date: 20120825
  Serious: No
  Sender: FDA-Public Use
  Company Number: US-PFIZER INC-2012057084

PATIENT
  Sex: Female
  Weight: 61.224 kg

DRUGS (3)
  1. TOVIAZ [Suspect]
     Indication: URINARY INCONTINENCE
  2. BENICAR [Concomitant]
     Indication: HYPERTENSION
     Dosage: UNK, DAILY
  3. TOVIAZ [Suspect]
     Indication: MICTURITION DISORDER
     Dosage: 4 MG, DAILY (ONCE AT NIGHT)
     Route: 048
     Dates: start: 20120217

REACTIONS (4)
  - FATIGUE [None]
  - SOMNOLENCE [None]
  - URINARY INCONTINENCE [None]
  - DRUG INEFFECTIVE [None]
